FAERS Safety Report 10070062 (Version 1)
Quarter: 2014Q2

REPORT INFORMATION
  Report Type: Spontaneous
  Country: GB (occurrence: GB)
  Receive Date: 20140410
  Receipt Date: 20140410
  Transmission Date: 20141212
  Serious: Yes (Hospitalization)
  Sender: FDA-Public Use
  Company Number: GB-TEVA-473907ISR

PATIENT
  Age: 75 Year
  Sex: Female

DRUGS (4)
  1. BUMETANIDE [Suspect]
     Indication: OEDEMA
     Route: 048
     Dates: end: 20140321
  2. AMOXICILLIN [Concomitant]
  3. LEVOTHYROXINE [Concomitant]
  4. PARACETAMOL [Concomitant]

REACTIONS (3)
  - Hyponatraemia [Recovering/Resolving]
  - Upper limb fracture [Unknown]
  - Fall [Unknown]
